FAERS Safety Report 19808102 (Version 1)
Quarter: 2021Q3

REPORT INFORMATION
  Report Type: Report from Study
  Country: IT (occurrence: IT)
  Receive Date: 20210908
  Receipt Date: 20210908
  Transmission Date: 20211014
  Serious: Yes (Hospitalization)
  Sender: FDA-Public Use
  Company Number: IT-MYLANLABS-2021M1059730

PATIENT
  Age: 89 Year
  Sex: Male

DRUGS (9)
  1. AMIODARONE [Suspect]
     Active Substance: AMIODARONE
     Indication: CEREBROVASCULAR ACCIDENT
     Dosage: 200 MILLIGRAM, QD
     Route: 048
  2. BENEXOL                            /00176001/ [Concomitant]
     Active Substance: CYANOCOBALAMIN\PYRIDOXINE\THIAMINE
     Dosage: UNK
  3. CARDIOASPIRIN [Concomitant]
     Active Substance: ASPIRIN
     Dosage: UNK
  4. VASEXTEN D [Concomitant]
     Dosage: UNK
  5. DUTASTERIDE. [Concomitant]
     Active Substance: DUTASTERIDE
     Dosage: UNK
  6. FOLINA                             /00024201/ [Concomitant]
     Active Substance: FOLIC ACID
  7. UROREC [Concomitant]
     Active Substance: SILODOSIN
     Dosage: UNK
  8. SIVASTIN [Concomitant]
     Active Substance: SIMVASTATIN
     Dosage: UNK
  9. RANEXA [Concomitant]
     Active Substance: RANOLAZINE
     Dosage: UNK

REACTIONS (1)
  - Hyperthyroidism [Recovering/Resolving]

NARRATIVE: CASE EVENT DATE: 20210315
